FAERS Safety Report 5221231-7 (Version None)
Quarter: 2007Q1

REPORT INFORMATION
  Report Type: 
  Country: None (occurrence: None)
  Receive Date: 20070126
  Receipt Date: 20070116
  Transmission Date: 20070707
  Serious: Yes (Death, Life-Threatening, Hospitalization, Other)
  Sender: FDA-Public Use
  Company Number: PL-PFIZER INC-2006114516

PATIENT
  Sex: Male
  Weight: 65 kg

DRUGS (1)
  1. SU-011,248 [Suspect]
     Indication: METASTATIC RENAL CELL CARCINOMA
     Route: 048
     Dates: start: 20060621, end: 20060719

REACTIONS (1)
  - CARDIOVASCULAR INSUFFICIENCY [None]
